FAERS Safety Report 12586099 (Version 1)
Quarter: 2016Q3

REPORT INFORMATION
  Report Type: Spontaneous
  Country: US (occurrence: None)
  Receive Date: 20160722
  Receipt Date: 20160722
  Transmission Date: 20161109
  Serious: No
  Sender: FDA-Public Use
  Company Number: None

PATIENT
  Age: 46 Year
  Sex: Female

DRUGS (4)
  1. HARVONI [Suspect]
     Active Substance: LEDIPASVIR\SOFOSBUVIR
     Indication: HEPATITIS C
     Dosage: 90-400MG QD PO
     Route: 048
     Dates: start: 20160630
  2. VIRTUSSINAC [Concomitant]
  3. ZITHROMAX [Concomitant]
     Active Substance: AZITHROMYCIN DIHYDRATE
  4. TESSALON [Concomitant]
     Active Substance: BENZONATATE

REACTIONS (1)
  - Pruritus [None]

NARRATIVE: CASE EVENT DATE: 201607
